APPROVED DRUG PRODUCT: FLUPHENAZINE HYDROCHLORIDE
Active Ingredient: FLUPHENAZINE HYDROCHLORIDE
Strength: 10MG
Dosage Form/Route: TABLET;ORAL
Application: A217189 | Product #004 | TE Code: AB
Applicant: MSN LABORATORIES PRIVATE LTD
Approved: Sep 11, 2023 | RLD: No | RS: No | Type: RX